FAERS Safety Report 8309744-2 (Version None)
Quarter: 2012Q2

REPORT INFORMATION
  Report Type: 
  Country: None (occurrence: None)
  Receive Date: 20120425
  Receipt Date: 20120416
  Transmission Date: 20120825
  Serious: Yes (Hospitalization)
  Sender: FDA-Public Use
  Company Number: PHHY2012CA033452

PATIENT
  Sex: Female

DRUGS (1)
  1. EXELON [Suspect]
     Indication: DEMENTIA ALZHEIMER'S TYPE
     Dosage: 4.6 MG/ 24HRS
     Route: 062
     Dates: start: 20120126

REACTIONS (4)
  - CEREBROVASCULAR ACCIDENT [None]
  - MONOPLEGIA [None]
  - MUSCULAR WEAKNESS [None]
  - MOBILITY DECREASED [None]
